FAERS Safety Report 20223961 (Version 2)
Quarter: 2022Q1

REPORT INFORMATION
  Report Type: Spontaneous
  Country: NL (occurrence: NL)
  Receive Date: 20211223
  Receipt Date: 20220107
  Transmission Date: 20220423
  Serious: Yes (Other)
  Sender: FDA-Public Use
  Company Number: NL-TEVA-2021-NL-1989605

PATIENT
  Age: 38 Year
  Sex: Female

DRUGS (8)
  1. DOXORUBICIN [Suspect]
     Active Substance: DOXORUBICIN
     Indication: Intraductal proliferative breast lesion
     Dosage: RECEIVED FOUR CYCLES (CUMULATIVE DOSE 222MG/M 2)
     Route: 065
     Dates: start: 2014
  2. ENALAPRIL [Suspect]
     Active Substance: ENALAPRIL
     Indication: Left ventricular enlargement
     Dosage: 5 MILLIGRAM DAILY;
     Route: 065
     Dates: start: 2015
  3. ENALAPRIL [Suspect]
     Active Substance: ENALAPRIL
     Indication: Systolic dysfunction
  4. CARVEDILOL [Suspect]
     Active Substance: CARVEDILOL
     Indication: Left ventricular enlargement
     Dosage: 6.25 MILLIGRAM DAILY;
     Route: 065
     Dates: start: 2015
  5. CARVEDILOL [Suspect]
     Active Substance: CARVEDILOL
     Indication: Systolic dysfunction
  6. CYCLOPHOSPHAMIDE [Concomitant]
     Active Substance: CYCLOPHOSPHAMIDE
     Indication: Intraductal proliferative breast lesion
     Dosage: RECEIVED FOUR CYCLES
     Route: 065
     Dates: start: 2014
  7. PACLITAXEL [Concomitant]
     Active Substance: PACLITAXEL
     Indication: Intraductal proliferative breast lesion
     Dosage: RECEIVED 12 TIMES
     Route: 065
     Dates: start: 2014
  8. TAMOXIFEN [Concomitant]
     Active Substance: TAMOXIFEN
     Indication: Intraductal proliferative breast lesion
     Route: 065
     Dates: start: 2014

REACTIONS (3)
  - Left ventricular enlargement [Recovering/Resolving]
  - Systolic dysfunction [Recovering/Resolving]
  - Orthostatic hypotension [Unknown]

NARRATIVE: CASE EVENT DATE: 20150101
